FAERS Safety Report 6879661-3 (Version None)
Quarter: 2010Q2

REPORT INFORMATION
  Report Type: 
  Country: None (occurrence: None)
  Receive Date: 20100625
  Receipt Date: 20091112
  Transmission Date: 20101027
  Serious: Yes (Other)
  Sender: FDA-Public Use
  Company Number: 2009275206

PATIENT
  Age: 58 Year
  Sex: Female
  Weight: 58.9 kg

DRUGS (7)
  1. ESTRING [Suspect]
     Indication: VULVOVAGINAL DRYNESS
     Dosage: 2 MG
     Dates: start: 20090801, end: 20090801
  2. PREVACID [Concomitant]
  3. LISINOPRIL [Concomitant]
  4. NEURONTIN [Concomitant]
  5. HYDROCHLOROTHIAZIDE [Concomitant]
  6. TOPAMAX [Concomitant]
  7. BENTYL [Concomitant]

REACTIONS (3)
  - BACK PAIN [None]
  - PAIN IN EXTREMITY [None]
  - THROMBOSIS [None]
